FAERS Safety Report 13073288 (Version 2)
Quarter: 2017Q1

REPORT INFORMATION
  Report Type: Spontaneous
  Country: US (occurrence: US)
  Receive Date: 20161229
  Receipt Date: 20170118
  Transmission Date: 20170428
  Serious: Yes (Hospitalization, Other)
  Sender: FDA-Public Use
  Company Number: US-SAOL THERAPEUTICS-2016SAO01295

PATIENT
  Age: 7 Year
  Sex: Male
  Weight: 26.98 kg

DRUGS (6)
  1. SENNA [Concomitant]
     Active Substance: SENNA LEAF\SENNOSIDES\SENNOSIDES A AND B
  2. BACLOFEN. [Suspect]
     Active Substance: BACLOFEN
     Dosage: UNK, AS NEEDED
     Route: 048
  3. MIRALAX [Concomitant]
     Active Substance: POLYETHYLENE GLYCOL 3350
  4. TRILEPTAL [Concomitant]
     Active Substance: OXCARBAZEPINE
  5. LIORESAL [Suspect]
     Active Substance: BACLOFEN
     Indication: MUSCLE SPASTICITY
     Dosage: 153 ?G, \DAY
  6. LIORESAL [Suspect]
     Active Substance: BACLOFEN
     Indication: CEREBRAL PALSY
     Dosage: 228.1 ?G, \DAY
     Dates: start: 20160913

REACTIONS (15)
  - Sepsis [Unknown]
  - Pruritus [Unknown]
  - Gastrointestinal perforation [Unknown]
  - Therapeutic response decreased [Unknown]
  - Muscle tightness [Unknown]
  - Muscle spasticity [Unknown]
  - Medical device site extravasation [Unknown]
  - Post lumbar puncture syndrome [Unknown]
  - Constipation [Unknown]
  - Therapy non-responder [Unknown]
  - Medical device site rash [Unknown]
  - Medical device site swelling [Unknown]
  - Withdrawal syndrome [Unknown]
  - Hypotonia [Unknown]
  - Clonus [Unknown]

NARRATIVE: CASE EVENT DATE: 201603
